FAERS Safety Report 9664036 (Version 2)
Quarter: 2014Q1

REPORT INFORMATION
  Report Type: Spontaneous
  Country: US (occurrence: US)
  Receive Date: 20131101
  Receipt Date: 20140221
  Transmission Date: 20141002
  Serious: Yes (Other)
  Sender: FDA-Public Use
  Company Number: US-PFIZER INC-2013309112

PATIENT
  Age: 56 Year
  Sex: Female
  Weight: 52.15 kg

DRUGS (17)
  1. PREMARIN [Suspect]
     Indication: BLOOD OESTROGEN DECREASED
     Dosage: 0.625 MG, 1X/DAY
     Route: 048
     Dates: start: 1981
  2. PREMARIN [Suspect]
     Dosage: 1.25 MG, 1X/DAY
     Route: 048
  3. PREMARIN [Suspect]
     Dosage: 2.5 MG, 1X/DAY
     Route: 048
     Dates: start: 1998
  4. PREMARIN [Suspect]
     Dosage: 1.875 MG (ONE TABLET OF 0.625MG AND ONE TABLET OF 1.25MG), 1X/DAY
     Route: 048
  5. PREMARIN [Suspect]
     Dosage: 1.25 MG, 1X/DAY
     Route: 048
     Dates: start: 2012, end: 2013
  6. PREMARIN [Suspect]
     Dosage: UNK
     Route: 048
  7. PREMARIN [Suspect]
     Dosage: 1.875 MG (ONE TABLET OF 0.625MG AND ONE TABLET OF 1.25MG), 1X/DAY
     Route: 048
     Dates: start: 2013
  8. IMITREX [Concomitant]
     Dosage: UNK, AS NEEDED
  9. LAMICTAL [Concomitant]
     Dosage: 25 MG, 2X/DAY
  10. ACIPHEX [Concomitant]
     Dosage: 20 MG, 1X/DAY
  11. TOPAMAX [Concomitant]
     Dosage: 100 MG, 1X/DAY
  12. CLARINEX [Concomitant]
     Dosage: 5 MG, 1X/DAY
  13. MOBIC [Concomitant]
     Dosage: 50 MG, 1X/DAY
  14. SOTALOL [Concomitant]
     Dosage: 40 MG, 2X/DAY
  15. SORBITOL [Concomitant]
     Dosage: UNK
  16. VERAPAMIL [Concomitant]
     Dosage: 40 MG, 2X/DAY
  17. LOVASTATIN [Concomitant]
     Indication: BLOOD CHOLESTEROL INCREASED
     Dosage: UNK

REACTIONS (3)
  - Rotator cuff syndrome [Unknown]
  - Tendon injury [Unknown]
  - Fall [Unknown]
